FAERS Safety Report 9247442 (Version 2)
Quarter: 2013Q2

REPORT INFORMATION
  Report Type: Spontaneous
  Country: US (occurrence: US)
  Receive Date: 20130423
  Receipt Date: 20130423
  Transmission Date: 20140414
  Serious: No
  Sender: FDA-Public Use
  Company Number: US-MYLANLABS-2012S1018558

PATIENT
  Sex: Female

DRUGS (8)
  1. LORAZEPAM TABLETS, USP [Suspect]
     Indication: ANXIETY
     Dates: start: 201003
  2. LORAZEPAM TABLETS, USP [Suspect]
     Indication: INSOMNIA
     Dates: start: 201003
  3. LORAZEPAM TABLETS, USP [Suspect]
     Indication: ANXIETY
     Dates: start: 201003
  4. LORAZEPAM TABLETS, USP [Suspect]
     Indication: INSOMNIA
     Dates: start: 201003
  5. VITAMIN C [Concomitant]
  6. IRON [Concomitant]
  7. ABILIFY [Concomitant]
  8. LAMICTAL [Concomitant]

REACTIONS (5)
  - Drug ineffective [Recovered/Resolved]
  - Anxiety [Recovered/Resolved]
  - Headache [Not Recovered/Not Resolved]
  - Malaise [Not Recovered/Not Resolved]
  - Insomnia [Not Recovered/Not Resolved]
